FAERS Safety Report 9244926 (Version 1)
Quarter: 2013Q2

REPORT INFORMATION
  Report Type: Report from Study
  Country: DE (occurrence: DE)
  Receive Date: 20130422
  Receipt Date: 20130422
  Transmission Date: 20140414
  Serious: Yes (Death)
  Sender: FDA-Public Use
  Company Number: DE-SANOFI-AVENTIS-2013SA040040

PATIENT
  Age: 66 Year
  Sex: Male
  Weight: 78 kg

DRUGS (6)
  1. LANTUS [Suspect]
     Indication: DIABETES MELLITUS
     Route: 058
     Dates: start: 20130111, end: 20130221
  2. BLINDED THERAPY [Suspect]
     Indication: DIABETES MELLITUS
     Dates: start: 20130111, end: 20130221
  3. METFORMIN [Concomitant]
     Indication: DIABETES MELLITUS
     Dates: start: 20100916
  4. OMEPRAZOLE [Concomitant]
     Indication: OESOPHAGITIS
     Dates: start: 20121018
  5. CANDESARTAN [Concomitant]
     Indication: HYPERTENSION
     Dates: start: 20121018
  6. RAMIPRIL [Concomitant]
     Indication: HYPERTENSION
     Dates: start: 20090303

REACTIONS (2)
  - Myocardial infarction [Fatal]
  - Bronchopneumonia [Fatal]
